FAERS Safety Report 4977009-2 (Version None)
Quarter: 2006Q2

REPORT INFORMATION
  Report Type: 
  Country: None (occurrence: None)
  Receive Date: 20060412
  Receipt Date: 20060329
  Transmission Date: 20061013
  Serious: Yes (Hospitalization)
  Sender: FDA-Public Use
  Company Number: ACC000043

PATIENT
  Age: 39 Year
  Sex: Female

DRUGS (5)
  1. REGLAN [Suspect]
     Indication: NAUSEA
     Dosage: 10 MG; EVERY 8 HR; IV
     Route: 042
     Dates: start: 20040912
  2. PROMETHAZINE [Suspect]
     Dosage: EVERY 4 HR;
     Dates: start: 20040911
  3. POTASSIUM ACETATE IN PLASTIC CONTAINER [Suspect]
     Dosage: CONTINUOUS; IV
     Route: 042
     Dates: start: 20040911
  4. PEPCID [Suspect]
     Dosage: 20 MG; 2X A DAY; IV
     Route: 042
     Dates: start: 20040911
  5. ZOFRAN [Suspect]
     Indication: NAUSEA
     Dosage: 4 MG; EVERY 8 HR; IV
     Route: 042
     Dates: start: 20040912

REACTIONS (7)
  - ABORTION SPONTANEOUS [None]
  - ANAEMIA [None]
  - CARDIAC FLUTTER [None]
  - DRUG EXPOSURE DURING PREGNANCY [None]
  - FALL [None]
  - INDUCED LABOUR [None]
  - INTRA-UTERINE DEATH [None]
